FAERS Safety Report 8289538-7 (Version None)
Quarter: 2012Q2

REPORT INFORMATION
  Report Type: 
  Country: None (occurrence: None)
  Receive Date: 20120417
  Receipt Date: 20120409
  Transmission Date: 20120825
  Serious: Yes (Hospitalization, Other)
  Sender: FDA-Public Use
  Company Number: US-BRISTOL-MYERS SQUIBB COMPANY-16358590

PATIENT
  Age: 73 Year
  Sex: Male
  Weight: 78 kg

DRUGS (2)
  1. TAXOL [Suspect]
     Indication: NON-SMALL CELL LUNG CANCER
     Dosage: LAST ADMIN:13JUL11,3AUG11. COURSE:7 CONSOLIDATION: 756MG
     Route: 042
     Dates: start: 20110511
  2. CARBOPLATIN [Suspect]
     Indication: NON-SMALL CELL LUNG CANCER
     Dosage: LAST ADMINISTERED DT:13JUL11,3AUG11, 3AUG11,COURSE:7 ALSO 540MG. CONSOLIDATION: 1080MG
     Route: 042
     Dates: start: 20110511

REACTIONS (3)
  - PNEUMONIA [None]
  - PLEURAL EFFUSION [None]
  - NEUTROPHIL COUNT DECREASED [None]
